FAERS Safety Report 20821033 (Version 2)
Quarter: 2022Q2

REPORT INFORMATION
  Report Type: Report from Study
  Country: US (occurrence: US)
  Receive Date: 20220512
  Receipt Date: 20220609
  Transmission Date: 20220721
  Serious: No
  Sender: FDA-Public Use
  Company Number: US-KYOWAKIRIN-2022BKK006780

PATIENT

DRUGS (1)
  1. CRYSVITA [Suspect]
     Active Substance: BUROSUMAB-TWZA
     Indication: Hereditary hypophosphataemic rickets
     Dosage: UNK,1X/2 WEEKS(EVERY 14 DAYS)
     Route: 065
     Dates: start: 20220321

REACTIONS (2)
  - Fatigue [Unknown]
  - Headache [Recovered/Resolved]
